FAERS Safety Report 18545029 (Version 1)
Quarter: 2020Q4

REPORT INFORMATION
  Report Type: Spontaneous
  Country: US (occurrence: US)
  Receive Date: 20201125
  Receipt Date: 20201125
  Transmission Date: 20210114
  Serious: No
  Sender: FDA-Public Use
  Company Number: US-SA-2020SA331209

PATIENT

DRUGS (1)
  1. ALLEGRA ALLERGY [Suspect]
     Active Substance: FEXOFENADINE HYDROCHLORIDE
     Indication: RASH
     Dosage: 180 MG, 1X
     Route: 065
     Dates: start: 20201117

REACTIONS (2)
  - Epistaxis [Unknown]
  - Agitation [Unknown]

NARRATIVE: CASE EVENT DATE: 20201117
